FAERS Safety Report 6762195-4 (Version None)
Quarter: 2010Q2

REPORT INFORMATION
  Report Type: 
  Country: None (occurrence: None)
  Receive Date: 20100609
  Receipt Date: 20100501
  Transmission Date: 20101027
  Serious: No
  Sender: FDA-Public Use
  Company Number: US-KINGPHARMUSA00001-K201000532

PATIENT
  Sex: Female

DRUGS (1)
  1. EMBEDA [Suspect]
     Indication: BACK PAIN
     Dosage: 50 MG, BID
     Route: 048
     Dates: end: 20100101

REACTIONS (5)
  - ADVERSE REACTION [None]
  - CHILLS [None]
  - DRUG INEFFECTIVE [None]
  - FORMICATION [None]
  - TREMOR [None]
